FAERS Safety Report 15325837 (Version 1)
Quarter: 2018Q3

REPORT INFORMATION
  Report Type: Spontaneous
  Country: US (occurrence: US)
  Receive Date: 20180823
  Receipt Date: 20180823
  Transmission Date: 20181010
  Serious: No
  Sender: FDA-Public Use
  Company Number: None

PATIENT
  Age: 36 Year
  Sex: Female

DRUGS (3)
  1. PREDNISONE 5MG [Concomitant]
     Active Substance: PREDNISONE
  2. CIMZIA [Suspect]
     Active Substance: CERTOLIZUMAB PEGOL
     Indication: RHEUMATOID ARTHRITIS
     Dosage: ?          OTHER FREQUENCY:EVERY 28 DAYS;?
     Route: 058
     Dates: start: 20150903, end: 20180823
  3. MULTI VITAMN MINERALS [Concomitant]

REACTIONS (1)
  - Conjunctivitis allergic [None]

NARRATIVE: CASE EVENT DATE: 20180822
